FAERS Safety Report 20245153 (Version 2)
Quarter: 2022Q1

REPORT INFORMATION
  Report Type: Report from Study
  Country: JP (occurrence: JP)
  Receive Date: 20211229
  Receipt Date: 20220204
  Transmission Date: 20220423
  Serious: Yes (Death)
  Sender: FDA-Public Use
  Company Number: JP-JNJFOC-A-CH2018-180132

PATIENT
  Age: 34 Year
  Sex: Female
  Weight: 43 kg

DRUGS (32)
  1. UPTRAVI [Suspect]
     Active Substance: SELEXIPAG
     Indication: Pulmonary arterial hypertension
     Dosage: 0.2 MG, TID
     Route: 048
     Dates: start: 20170712
  2. UPTRAVI [Suspect]
     Active Substance: SELEXIPAG
     Dosage: 0.2 MG, BID
     Route: 048
     Dates: start: 20170412, end: 20170509
  3. UPTRAVI [Suspect]
     Active Substance: SELEXIPAG
     Dosage: 0.4 MG, TID
     Route: 048
     Dates: start: 20170510, end: 20170606
  4. UPTRAVI [Suspect]
     Active Substance: SELEXIPAG
     Dosage: 0.2 MG, TID
     Route: 048
     Dates: start: 20170607, end: 20170704
  5. UPTRAVI [Suspect]
     Active Substance: SELEXIPAG
     Dosage: 0.4 MG, BID
     Route: 048
     Dates: start: 20170705, end: 20170711
  6. UPTRAVI [Suspect]
     Active Substance: SELEXIPAG
     Route: 048
     Dates: start: 20170802
  7. UPTRAVI [Suspect]
     Active Substance: SELEXIPAG
     Route: 048
  8. OPSUMIT [Suspect]
     Active Substance: MACITENTAN
     Indication: Pulmonary arterial hypertension
     Dosage: 10 MG, QD
     Route: 048
     Dates: start: 20170426
  9. TRACLEER [Concomitant]
     Active Substance: BOSENTAN
     Indication: Pulmonary arterial hypertension
     Dosage: 62.5MG
     Route: 048
     Dates: end: 20170426
  10. TRACLEER [Concomitant]
     Active Substance: BOSENTAN
     Route: 048
     Dates: end: 20170425
  11. REVATIO [Concomitant]
     Active Substance: SILDENAFIL CITRATE
     Indication: Pulmonary arterial hypertension
     Dosage: 60 MG, QD
  12. URSO [Concomitant]
     Active Substance: URSODIOL
     Indication: Chronic hepatitis C
     Dosage: 600 MG, QD
  13. SPIRONOLACTONE [Concomitant]
     Active Substance: SPIRONOLACTONE
     Dosage: 25 MG, QD
     Dates: start: 20170412, end: 20170831
  14. SPIRONOLACTONE [Concomitant]
     Active Substance: SPIRONOLACTONE
     Dates: start: 20170913, end: 20181122
  15. TORSEMIDE [Concomitant]
     Active Substance: TORSEMIDE
     Dosage: 8 MG, QD
     Dates: end: 20170831
  16. TORSEMIDE [Concomitant]
     Active Substance: TORSEMIDE
     Dosage: 16 MG, QD
     Dates: start: 20170901
  17. TORSEMIDE [Concomitant]
     Active Substance: TORSEMIDE
     Dosage: 16 MG, QD
     Dates: start: 20181123
  18. TRICHLORMETHIAZIDE [Concomitant]
     Active Substance: TRICHLORMETHIAZIDE
     Indication: Cardiac failure
     Dosage: 1 MG, QD
  19. SAMSCA [Concomitant]
     Active Substance: TOLVAPTAN
     Dosage: 15 MG, QD
  20. LANSOPRAZOLE [Concomitant]
     Active Substance: LANSOPRAZOLE
     Dosage: 15 MG, QD
     Dates: start: 20170412, end: 20170815
  21. BIFIDOBACTERIUM SPP. [Concomitant]
     Active Substance: BIFIDOBACTERIUM SPP.
     Indication: Diarrhoea
     Dosage: 3 G, QD
  22. SLOW-K [Concomitant]
     Active Substance: POTASSIUM CHLORIDE
     Indication: Hypokalaemia
     Dosage: 1200 MG, QD
     Dates: start: 20170510
  23. VONOPRAZAN FUMARATE [Concomitant]
     Active Substance: VONOPRAZAN FUMARATE
     Indication: Prophylaxis
     Dosage: 10 MG, QD
     Dates: start: 20170816, end: 20170912
  24. CODEINE PHOSPHATE [Concomitant]
     Active Substance: CODEINE PHOSPHATE
     Indication: Cough
     Dosage: 2 MG, QD
     Dates: start: 20170821, end: 20170826
  25. SPIRONOLACTONE [Concomitant]
     Active Substance: SPIRONOLACTONE
     Dosage: 50 MG, QD
     Dates: start: 20170901, end: 20170912
  26. SPIRONOLACTONE [Concomitant]
     Active Substance: SPIRONOLACTONE
     Dosage: 50 MG, QD
     Dates: start: 20181123
  27. OXYGEN [Concomitant]
     Active Substance: OXYGEN
  28. REBAMIPIDE [Concomitant]
     Active Substance: REBAMIPIDE
     Indication: Prophylaxis
     Dosage: 300 MG, QD
     Dates: start: 20170913, end: 20171206
  29. REBAMIPIDE [Concomitant]
     Active Substance: REBAMIPIDE
     Dosage: 300 MG, QD
     Dates: start: 20171216
  30. TRICHLORMETHIAZIDE [Concomitant]
     Active Substance: TRICHLORMETHIAZIDE
     Dates: start: 20180829
  31. TRICHLORMETHIAZIDE [Concomitant]
     Active Substance: TRICHLORMETHIAZIDE
     Dates: start: 20181123
  32. POTASSIUM ASPARTATE [Concomitant]
     Active Substance: POTASSIUM ASPARTATE
     Dates: start: 20190313

REACTIONS (3)
  - Pulmonary arterial hypertension [Fatal]
  - Blood pressure decreased [Unknown]
  - Malaise [Not Recovered/Not Resolved]

NARRATIVE: CASE EVENT DATE: 20170712
